FAERS Safety Report 8329873-7 (Version None)
Quarter: 2012Q2

REPORT INFORMATION
  Report Type: 
  Country: None (occurrence: None)
  Receive Date: 20120430
  Receipt Date: 20120420
  Transmission Date: 20120825
  Serious: Yes (Hospitalization, Other)
  Sender: FDA-Public Use
  Company Number: 2012SP021762

PATIENT
  Age: 62 Year
  Sex: Male
  Weight: 87 kg

DRUGS (7)
  1. RIBAVIRIN [Suspect]
     Indication: PRODUCT USED FOR UNKNOWN INDICATION
     Dates: start: 20110224, end: 20111205
  2. ZYPREXA [Concomitant]
  3. CYMBALTA [Concomitant]
  4. VICTRELIS [Suspect]
     Indication: PRODUCT USED FOR UNKNOWN INDICATION
     Dosage: 800 MG, TID
     Dates: start: 20110324, end: 20111205
  5. PEGINTERFERON ALFA-2B [Suspect]
     Indication: PRODUCT USED FOR UNKNOWN INDICATION
     Dosage: 130 MCG/KG, QD
     Dates: start: 20110224, end: 20111205
  6. METFORMIN HCL [Concomitant]
  7. TOCOFEROL [Concomitant]

REACTIONS (1)
  - VIITH NERVE PARALYSIS [None]
